FAERS Safety Report 10963479 (Version 1)
Quarter: 2015Q1

REPORT INFORMATION
  Report Type: Spontaneous
  Country: GB (occurrence: None)
  Receive Date: 20150326
  Receipt Date: 20150326
  Transmission Date: 20150721
  Serious: Yes (Death, Other)
  Sender: FDA-Public Use
  Company Number: 2796287

PATIENT
  Age: 69 Year
  Sex: Male

DRUGS (1)
  1. MEROPENEM. [Suspect]
     Active Substance: MEROPENEM
     Indication: INFECTION
     Dosage: UNKNOWN, INTRAVENOUS (NOT OTHERWISE SPECIFIED)???
     Route: 042

REACTIONS (2)
  - General physical health deterioration [None]
  - Myasthenia gravis [None]
